FAERS Safety Report 8102663-6 (Version None)
Quarter: 2012Q1

REPORT INFORMATION
  Report Type: 
  Country: None (occurrence: None)
  Receive Date: 20120201
  Receipt Date: 20120123
  Transmission Date: 20120608
  Serious: Yes (Hospitalization)
  Sender: FDA-Public Use
  Company Number: US-BAYER-2011-092420

PATIENT
  Age: 20 Year
  Sex: Female
  Weight: 58.957 kg

DRUGS (3)
  1. YAZ [Suspect]
     Indication: ACNE
  2. YAZ [Suspect]
     Indication: CONTRACEPTION
     Dosage: UNK UNK, QID
     Route: 048
     Dates: start: 20090601, end: 20090925
  3. HYOMAX-SL [Concomitant]
     Dosage: 0.125 MG, UNK
     Dates: start: 20090826

REACTIONS (3)
  - CHOLECYSTITIS CHRONIC [None]
  - INJURY [None]
  - CHOLELITHIASIS [None]
